FAERS Safety Report 8077074-2 (Version None)
Quarter: 2012Q1

REPORT INFORMATION
  Report Type: 
  Country: None (occurrence: None)
  Receive Date: 20120127
  Receipt Date: 20120124
  Transmission Date: 20120608
  Serious: Yes (Hospitalization)
  Sender: FDA-Public Use
  Company Number: FR-VERTEX PHARMACEUTICALS INC.-AE-2012-001378

PATIENT
  Sex: Male

DRUGS (7)
  1. EFFEXOR [Concomitant]
     Indication: PRODUCT USED FOR UNKNOWN INDICATION
     Route: 048
     Dates: start: 20100421, end: 20111226
  2. COPEGUS [Concomitant]
     Indication: PRODUCT USED FOR UNKNOWN INDICATION
     Route: 048
     Dates: start: 20111212
  3. LOXAPINE HCL [Concomitant]
     Dosage: IF NECESSARY
     Route: 048
     Dates: start: 20111205
  4. PEGASYS [Concomitant]
     Indication: PRODUCT USED FOR UNKNOWN INDICATION
     Dates: start: 20111212
  5. PANTOPRAZOLE [Concomitant]
     Route: 048
  6. METHADONE HCL [Concomitant]
     Route: 048
  7. INCIVO (TELAPREVIR) [Suspect]
     Indication: PRODUCT USED FOR UNKNOWN INDICATION
     Route: 048
     Dates: start: 20111209

REACTIONS (1)
  - VENTRICULAR TACHYCARDIA [None]
